FAERS Safety Report 12555935 (Version 1)
Quarter: 2016Q3

REPORT INFORMATION
  Report Type: Spontaneous
  Country: US (occurrence: None)
  Receive Date: 20160713
  Receipt Date: 20160713
  Transmission Date: 20161109
  Serious: No
  Sender: FDA-Public Use
  Company Number: None

PATIENT
  Age: 42 Year
  Sex: Female

DRUGS (4)
  1. FOLIC ACID. [Concomitant]
     Active Substance: FOLIC ACID
  2. SYNTHROID [Concomitant]
     Active Substance: LEVOTHYROXINE SODIUM
  3. EXJADE [Suspect]
     Active Substance: DEFERASIROX
  4. HYDREA [Concomitant]
     Active Substance: HYDROXYUREA

REACTIONS (1)
  - Headache [None]

NARRATIVE: CASE EVENT DATE: 20160712
